FAERS Safety Report 9138069 (Version 1)
Quarter: 2013Q1

REPORT INFORMATION
  Report Type: Spontaneous
  Country: GB (occurrence: GB)
  Receive Date: 20130304
  Receipt Date: 20130304
  Transmission Date: 20140127
  Serious: Yes (Other)
  Sender: FDA-Public Use
  Company Number: GB-BRISTOL-MYERS SQUIBB COMPANY-17411281

PATIENT
  Age: 55 Year
  Sex: Female

DRUGS (7)
  1. SAXAGLIPTIN [Suspect]
     Indication: TYPE 2 DIABETES MELLITUS
     Dosage: CUMULATIVE DOSE:2.53 UNDEFINED
     Route: 048
     Dates: start: 20130129, end: 20130201
  2. METFORMIN HCL [Concomitant]
  3. RAMIPRIL [Concomitant]
  4. LEVOTHYROXINE [Concomitant]
     Dosage: VARIABLE
  5. COAPROVEL [Concomitant]
     Dosage: 300/ 12.5
  6. AMLODIPINE [Concomitant]
  7. SIMVASTATIN [Concomitant]

REACTIONS (1)
  - Arthralgia [Recovered/Resolved]
